FAERS Safety Report 17230151 (Version 1)
Quarter: 2020Q1

REPORT INFORMATION
  Report Type: Report from Study
  Country: IN (occurrence: IN)
  Receive Date: 20200103
  Receipt Date: 20200103
  Transmission Date: 20200409
  Serious: Yes (Hospitalization)
  Sender: FDA-Public Use
  Company Number: IN-EISAI MEDICAL RESEARCH-EC-2020-067997

PATIENT
  Age: 67 Year
  Sex: Male

DRUGS (1)
  1. LENVIMA [Suspect]
     Active Substance: LENVATINIB
     Indication: HEPATOCELLULAR CARCINOMA
     Route: 048
     Dates: start: 20190408, end: 201912

REACTIONS (2)
  - Loss of consciousness [Not Recovered/Not Resolved]
  - Haematochezia [Recovering/Resolving]

NARRATIVE: CASE EVENT DATE: 201912
